FAERS Safety Report 4884829-1 (Version None)
Quarter: 2006Q1

REPORT INFORMATION
  Report Type: 
  Country: None (occurrence: None)
  Receive Date: 20060119
  Receipt Date: 20051117
  Transmission Date: 20060701
  Serious: Yes (Hospitalization, Disabling, Other)
  Sender: FDA-Public Use
  Company Number: US-GLAXOSMITHKLINE-A0582776A

PATIENT
  Age: 21 Year
  Sex: Female
  Weight: 28 kg

DRUGS (2)
  1. LAMICTAL [Suspect]
     Indication: BORDERLINE PERSONALITY DISORDER
     Dosage: 1000MG PER DAY
     Route: 048
     Dates: start: 20051116, end: 20051117
  2. PAXIL CR [Concomitant]

REACTIONS (10)
  - ABASIA [None]
  - DEPRESSED MOOD [None]
  - DRUG SCREEN FALSE POSITIVE [None]
  - DYSARTHRIA [None]
  - IRRITABILITY [None]
  - LOSS OF CONSCIOUSNESS [None]
  - MOOD SWINGS [None]
  - PERSONALITY CHANGE [None]
  - SEDATION [None]
  - SUICIDE ATTEMPT [None]
